FAERS Safety Report 8000736-X (Version None)
Quarter: 2011Q4

REPORT INFORMATION
  Report Type: 
  Country: None (occurrence: None)
  Receive Date: 20111222
  Receipt Date: 20111215
  Transmission Date: 20120403
  Serious: Yes (Hospitalization)
  Sender: FDA-Public Use
  Company Number: DE-BRISTOL-MYERS SQUIBB COMPANY-16001844

PATIENT
  Age: 56 Year
  Sex: Female
  Weight: 95 kg

DRUGS (8)
  1. IPILIMUMAB [Suspect]
     Indication: MALIGNANT MELANOMA
     Route: 042
     Dates: start: 20110713, end: 20110824
  2. FRAXIPARINE [Concomitant]
     Route: 058
     Dates: start: 20111119
  3. FORTECORTIN [Concomitant]
     Indication: HYPOPHYSITIS
     Dosage: 12MG FROM 26SEP2011
     Route: 048
     Dates: start: 20110920, end: 20110925
  4. PANTOPRAZOLE SODIUM [Concomitant]
     Route: 048
     Dates: start: 20111031
  5. TAZOBACTAM [Concomitant]
     Route: 042
     Dates: start: 20111111
  6. ARIXTRA [Concomitant]
     Route: 058
     Dates: start: 20111111, end: 20111119
  7. CLARITHROMYCIN [Concomitant]
     Route: 048
     Dates: start: 20111111
  8. PREDNISONE TAB [Concomitant]
     Route: 048
     Dates: start: 20111031

REACTIONS (10)
  - PULMONARY EMBOLISM [None]
  - HYPOTHYROIDISM [None]
  - PYREXIA [None]
  - RENAL FAILURE [None]
  - RASH MACULO-PAPULAR [None]
  - MALAISE [None]
  - DEEP VEIN THROMBOSIS [None]
  - HYPOPHYSITIS [None]
  - NEOPLASM MALIGNANT [None]
  - NEPHROLITHIASIS [None]
